FAERS Safety Report 7953817-0 (Version None)
Quarter: 2011Q4

REPORT INFORMATION
  Report Type: 
  Country: None (occurrence: None)
  Receive Date: 20111202
  Receipt Date: 20111123
  Transmission Date: 20120403
  Serious: Yes (Death)
  Sender: FDA-Public Use
  Company Number: US-JNJFOC-20111111481

PATIENT
  Sex: Male

DRUGS (3)
  1. TYLENOL (CAPLET) [Suspect]
     Indication: PAIN PROPHYLAXIS
     Route: 048
     Dates: start: 19910101
  2. ALCOHOL [Suspect]
     Indication: PRODUCT USED FOR UNKNOWN INDICATION
  3. TYLENOL (CAPLET) [Suspect]
     Route: 048

REACTIONS (2)
  - LIVER INJURY [None]
  - RENAL FAILURE [None]
